FAERS Safety Report 10696115 (Version 2)
Quarter: 2015Q1

REPORT INFORMATION
  Report Type: Spontaneous
  Country: US (occurrence: US)
  Receive Date: 20150107
  Receipt Date: 20150323
  Transmission Date: 20150721
  Serious: No
  Sender: FDA-Public Use
  Company Number: US-PFIZER INC-2015003310

PATIENT
  Sex: Female

DRUGS (2)
  1. LYRICA [Suspect]
     Active Substance: PREGABALIN
     Dosage: 1 DF, UNK
  2. LYRICA [Suspect]
     Active Substance: PREGABALIN
     Dosage: 2 DF, UNK

REACTIONS (3)
  - Pain [Unknown]
  - Oral disorder [Unknown]
  - Sleep disorder [Unknown]
